FAERS Safety Report 8316610 (Version 3)
Quarter: 2012Q4

REPORT INFORMATION
  Report Type: 
  Country: JP (occurrence: JP)
  Receive Date: 20111230
  Receipt Date: 20121213
  Transmission Date: 20130627
  Serious: Yes (Death, Hospitalization, Other)
  Sender: FDA-Public Use
  Company Number: JP-BAYER-2011-123634

PATIENT
  Age: 57 Year
  Sex: Male
  Weight: 60 kg

DRUGS (9)
  1. NEXAVAR [Suspect]
     Indication: CARCINOMA HEPATOCELLULAR
     Dosage: 400 mg, QD
     Route: 048
     Dates: start: 20110608, end: 20110616
  2. LOXOPROFEN [Suspect]
     Indication: CANCER PAIN
     Dosage: Daily dose 180 mg
     Route: 048
     Dates: start: 20110611, end: 20110616
  3. PARIET [Concomitant]
     Dosage: Daily dose 10 mg
     Route: 048
  4. FLUITRAN [Concomitant]
     Dosage: Daily dose 1 mg
     Route: 048
  5. AMLODIPINE BESILATE [Concomitant]
     Dosage: Daily dose 5 mg
     Route: 048
  6. BLOPRESS [Concomitant]
     Dosage: Daily dose 8 mg
     Route: 048
  7. AMARYL [Concomitant]
     Dosage: Daily dose 3 mg
     Route: 048
  8. CRESTOR [Concomitant]
     Dosage: Daily dose 2.5 mg
     Route: 048
  9. URDENACIN [Concomitant]
     Dosage: Daily dose 300 mg
     Route: 048

REACTIONS (5)
  - Oesophageal ulcer [Unknown]
  - Gastric ulcer [Recovered/Resolved]
  - Faeces discoloured [Recovered/Resolved]
  - Oesophageal varices haemorrhage [Unknown]
  - Hepatocellular carcinoma [Fatal]
